FAERS Safety Report 11144775 (Version 1)
Quarter: 2015Q2

REPORT INFORMATION
  Report Type: Spontaneous
  Country: US (occurrence: None)
  Receive Date: 20150526
  Receipt Date: 20150526
  Transmission Date: 20150821
  Serious: Yes (Hospitalization, Other)
  Sender: FDA-Public Use
  Company Number: US-ZYDUS-008134

PATIENT
  Age: 62 Year
  Sex: Female

DRUGS (1)
  1. AZATHIOPRINE (AZATHIOPRINE) [Suspect]
     Active Substance: AZATHIOPRINE

REACTIONS (2)
  - Drug reaction with eosinophilia and systemic symptoms [None]
  - Idiosyncratic drug reaction [None]
